FAERS Safety Report 6510945-4 (Version None)
Quarter: 2009Q4

REPORT INFORMATION
  Report Type: 
  Country: None (occurrence: None)
  Receive Date: 20091217
  Receipt Date: 20091202
  Transmission Date: 20100525
  Serious: Yes (Hospitalization)
  Sender: FDA-Public Use
  Company Number: POMP-1000798

PATIENT
  Age: 3 Year
  Sex: Male
  Weight: 14.2 kg

DRUGS (26)
  1. MYOZYME [Suspect]
     Indication: GLYCOGEN STORAGE DISEASE TYPE II
     Dosage: 550 MG, INTRAVENOUS
     Route: 042
     Dates: start: 20060911
  2. TAMIFLU [Suspect]
     Indication: DRUG USE FOR UNKNOWN INDICATION
     Dates: start: 20091101
  3. IMMUNE GLOBULIN (IMMUNOGLOBULIN) [Concomitant]
  4. EPOETIN ALFA (EPOETIN ALFA) [Concomitant]
  5. MUPIROCIN (MUPIROCIN) UNKNOWN, 2% [Concomitant]
  6. LEVALBUTEROL HYDROCHLORIDE (LEVOSALBUTAMOL HYDROCHLORIDE) INHALATION G [Concomitant]
  7. IRON SUCROSE (SACCHARATED IRON OXIDE) [Concomitant]
  8. IBUPROFEN [Concomitant]
  9. BUDESONIDE (BUDESONIDE) INHALATION GAS [Concomitant]
  10. NYSTATIN [Concomitant]
  11. LACTOBACILLUS (LACTOBACILLUS ACIDOPHILUS) CAPSULE [Concomitant]
  12. LIDOCAINE [Concomitant]
  13. ACETAMINOPHEN [Concomitant]
  14. SODIUM CHLORIDE 0.9% [Concomitant]
  15. FLECAINIDE ACETATE [Concomitant]
  16. SPIRONOLACTONE [Concomitant]
  17. METHOTREXATE [Concomitant]
  18. LANSOPRAZOLE [Concomitant]
  19. SULFAMETHOPRIM (SULFAMETHOXAZOLE, TRIMETHOPRIM) [Concomitant]
  20. ERGOCALCIFEROL [Concomitant]
  21. ETHANOL (ETHANOL) [Concomitant]
  22. POTASSIUM PHOSPHATE DIBASIC (POTASSIUM PHOSPHATE DIBASIC) [Concomitant]
  23. CALCIUM GLUBIONATE (CALCIUM GLUBIONATE) [Concomitant]
  24. STEROID ANTIBACTERIALS [Concomitant]
  25. VANCOMYCIN [Concomitant]
  26. IMIPENEM (IMIPENEM) [Concomitant]

REACTIONS (6)
  - BREATH SOUNDS ABNORMAL [None]
  - INCREASED UPPER AIRWAY SECRETION [None]
  - INFLUENZA LIKE ILLNESS [None]
  - PNEUMONIA [None]
  - PROLONGED EXPIRATION [None]
  - PYREXIA [None]
